FAERS Safety Report 5082740-7 (Version None)
Quarter: 2006Q3

REPORT INFORMATION
  Report Type: 
  Country: None (occurrence: None)
  Receive Date: 20060816
  Receipt Date: 20060816
  Transmission Date: 20061208
  Serious: Yes (Other)
  Sender: FDA-Public Use
  Company Number: None

PATIENT
  Age: 9 Year
  Sex: Male
  Weight: 26.9 kg

DRUGS (14)
  1. CARIMUNE [Suspect]
     Indication: BONE MARROW TRANSPLANT
     Dosage: 12 GMS 6% IV IN 200 ML   ~ X1/MONTH
  2. TACROLIMUS [Concomitant]
  3. CELLCEPT [Concomitant]
  4. FLUCONAZOLE [Concomitant]
  5. ZYRTEC [Concomitant]
  6. ZITHROMAX [Concomitant]
  7. PATANOL [Concomitant]
  8. NYSTATIN [Concomitant]
  9. ZANTAC [Concomitant]
  10. NORVASC [Concomitant]
  11. ALLEGRA [Concomitant]
  12. CEFTIN [Concomitant]
  13. ALBUTEROL SPIROS [Concomitant]
  14. CARIMUNE [Suspect]

REACTIONS (5)
  - BREATH SOUNDS ABNORMAL [None]
  - COUGH [None]
  - DYSPNOEA [None]
  - ERYTHEMA [None]
  - INFUSION RELATED REACTION [None]
